FAERS Safety Report 9332129 (Version 1)
Quarter: 2013Q2

REPORT INFORMATION
  Report Type: Report from Study
  Country: CN (occurrence: CN)
  Receive Date: 20130606
  Receipt Date: 20130606
  Transmission Date: 20140414
  Serious: Yes (Death, Other)
  Sender: FDA-Public Use
  Company Number: CN-ROCHE-1231646

PATIENT
  Sex: 0

DRUGS (4)
  1. MYCOPHENOLATE MOFETIL [Suspect]
     Indication: PROPHYLAXIS AGAINST TRANSPLANT REJECTION
     Dosage: 1.5 TO 2 G/DAY
     Route: 065
  2. CYCLOSPORIN [Suspect]
     Indication: PROPHYLAXIS AGAINST TRANSPLANT REJECTION
     Dosage: 4.0-4.5MG/KG/DAY
     Route: 065
  3. PREDNISONE [Suspect]
     Indication: PROPHYLAXIS AGAINST TRANSPLANT REJECTION
     Dosage: 40MG/D AND THE MAINTENANCE DOSE OF 10 TO 20MG/D IN CSA+MMF+PRED GROUP AND 10MG/D IN TAC+MMF+PRED GRO
     Route: 065
  4. TACROLIMUS [Suspect]
     Indication: PROPHYLAXIS AGAINST TRANSPLANT REJECTION
     Dosage: 0.08-0.10 MG/DAY
     Route: 065

REACTIONS (3)
  - Infection [Fatal]
  - Neoplasm malignant [Fatal]
  - Bone marrow failure [Unknown]
